FAERS Safety Report 25637097 (Version 2)
Quarter: 2025Q3

REPORT INFORMATION
  Report Type: Spontaneous
  Country: US (occurrence: US)
  Receive Date: 20250804
  Receipt Date: 20250918
  Transmission Date: 20251020
  Serious: Yes (Life-Threatening, Other)
  Sender: SANDOZ
  Company Number: US-SANDOZ-SDZ2025US055244

PATIENT
  Sex: Male

DRUGS (2)
  1. FERUMOXYTOL [Suspect]
     Active Substance: FERUMOXYTOL
     Indication: Product used for unknown indication
     Route: 065
     Dates: start: 20250725, end: 20250725
  2. FERAHEME [Suspect]
     Active Substance: FERUMOXYTOL NON-STOICHIOMETRIC MAGNETITE
     Indication: Product used for unknown indication
     Route: 065
     Dates: start: 20250725, end: 20250725

REACTIONS (8)
  - Anxiety [Unknown]
  - Chest pain [Unknown]
  - Dyspnoea [Unknown]
  - Flushing [Unknown]
  - Nausea [Unknown]
  - Vomiting [Unknown]
  - Wheezing [Unknown]
  - Anaphylactic reaction [Unknown]
